FAERS Safety Report 9509088 (Version 1)
Quarter: 2013Q3

REPORT INFORMATION
  Report Type: Spontaneous
  Country: US (occurrence: US)
  Receive Date: 20130909
  Receipt Date: 20130909
  Transmission Date: 20140515
  Serious: No
  Sender: FDA-Public Use
  Company Number: US-BRISTOL-MYERS SQUIBB COMPANY-19044155

PATIENT
  Age: 16 Year
  Sex: Female
  Weight: 58.96 kg

DRUGS (4)
  1. ABILIFY TABS 10 MG [Suspect]
     Indication: ANXIETY DISORDER
     Dosage: LAST DOSE ON 24JUN2013
     Dates: start: 20130310
  2. ABILIFY TABS 10 MG [Suspect]
     Indication: DEPRESSION
     Dosage: LAST DOSE ON 24JUN2013
     Dates: start: 20130310
  3. ZOLOFT [Concomitant]
  4. FLUOXETINE [Concomitant]

REACTIONS (2)
  - Tic [Unknown]
  - Fatigue [Unknown]
